FAERS Safety Report 12909491 (Version 1)
Quarter: 2016Q4

REPORT INFORMATION
  Report Type: Report from Study
  Country: US (occurrence: US)
  Receive Date: 20161104
  Receipt Date: 20161104
  Transmission Date: 20170207
  Serious: Yes (Hospitalization, Other)
  Sender: FDA-Public Use
  Company Number: US-AMGEN-USASP2016150364

PATIENT
  Age: 62 Year
  Sex: Female

DRUGS (2)
  1. ENBREL [Suspect]
     Active Substance: ETANERCEPT
     Indication: PSORIASIS
     Dosage: UNK UNK, QWK
     Route: 065
  2. ENBREL [Suspect]
     Active Substance: ETANERCEPT
     Indication: PSORIATIC ARTHROPATHY
     Dosage: UNK
     Route: 065

REACTIONS (9)
  - Hypoaesthesia [Unknown]
  - Head injury [Unknown]
  - Finger deformity [Unknown]
  - Therapeutic response decreased [Unknown]
  - Clostridium difficile infection [Recovered/Resolved]
  - Pain [Unknown]
  - Hyperaesthesia [Unknown]
  - Back pain [Unknown]
  - Musculoskeletal discomfort [Unknown]
